FAERS Safety Report 6075586-4 (Version None)
Quarter: 2009Q1

REPORT INFORMATION
  Report Type: 
  Country: None (occurrence: None)
  Receive Date: 20090212
  Receipt Date: 20090205
  Transmission Date: 20090719
  Serious: Yes (Other)
  Sender: FDA-Public Use
  Company Number: US-ELI_LILLY_AND_COMPANY-US200902001054

PATIENT
  Sex: Female

DRUGS (2)
  1. HUMALOG MIX 50/50 [Suspect]
     Dosage: UNK, UNK
     Dates: start: 20090101
  2. HUMALOG MIX 50/50 [Suspect]

REACTIONS (3)
  - ARTHRITIS [None]
  - BLINDNESS UNILATERAL [None]
  - PAIN IN EXTREMITY [None]
